FAERS Safety Report 9395773 (Version 7)
Quarter: 2017Q1

REPORT INFORMATION
  Report Type: Spontaneous
  Country: US (occurrence: US)
  Receive Date: 20130711
  Receipt Date: 20170330
  Transmission Date: 20170429
  Serious: Yes (Hospitalization, Disabling, Other)
  Sender: FDA-Public Use
  Company Number: US-009507513-1307USA004489

PATIENT
  Sex: Female
  Weight: 81.63 kg

DRUGS (6)
  1. VITAMIN D [Concomitant]
     Active Substance: CHOLECALCIFEROL
     Indication: OSTEOPENIA
     Dosage: 1000 IU, UNK
     Route: 065
     Dates: start: 1998, end: 2013
  2. ALENDRONATE SODIUM. [Suspect]
     Active Substance: ALENDRONATE SODIUM
     Indication: OSTEOPENIA
     Dosage: 70 MG, QW
     Route: 048
     Dates: start: 200802, end: 200911
  3. FOSAMAX [Suspect]
     Active Substance: ALENDRONATE SODIUM
     Indication: OSTEOPENIA
     Dosage: 70 MG, QW
     Route: 048
     Dates: start: 200703, end: 200804
  4. VITAMINS (UNSPECIFIED) [Concomitant]
     Active Substance: VITAMINS
     Indication: ROUTINE HEALTH MAINTENANCE
     Dosage: 1 PILL, QD
     Route: 065
     Dates: start: 1998, end: 2013
  5. ALENDRONATE SODIUM. [Suspect]
     Active Substance: ALENDRONATE SODIUM
     Indication: OSTEOPENIA
     Dosage: 70 MG, QW
     Route: 048
     Dates: start: 20080403, end: 20091127
  6. CALCIUM (UNSPECIFIED) [Concomitant]
     Active Substance: CALCIUM
     Indication: OSTEOPENIA
     Dosage: 1000 MG, QD
     Route: 065
     Dates: start: 1998, end: 2013

REACTIONS (21)
  - Peripheral swelling [Not Recovered/Not Resolved]
  - Arthritis [Unknown]
  - Anaemia postoperative [Unknown]
  - Localised infection [Unknown]
  - Arthralgia [Unknown]
  - Femur fracture [Not Recovered/Not Resolved]
  - Bursitis [Unknown]
  - Body temperature increased [Unknown]
  - Joint injury [Unknown]
  - Foot deformity [Unknown]
  - Muscular weakness [Unknown]
  - Tooth extraction [Recovered/Resolved]
  - Intervertebral disc protrusion [Unknown]
  - Urinary retention postoperative [Unknown]
  - Hip fracture [Unknown]
  - Back pain [Unknown]
  - Osteoporosis [Unknown]
  - Arthritis [Unknown]
  - Arthralgia [Unknown]
  - Constipation [Recovered/Resolved]
  - Dental prosthesis placement [Recovered/Resolved]

NARRATIVE: CASE EVENT DATE: 2007
